FAERS Safety Report 11792540 (Version 6)
Quarter: 2021Q2

REPORT INFORMATION
  Report Type: Spontaneous
  Country: US (occurrence: US)
  Receive Date: 20151202
  Receipt Date: 20210618
  Transmission Date: 20210716
  Serious: Yes (Other)
  Sender: FDA-Public Use
  Company Number: US-ROCHE-1667027

PATIENT
  Sex: Female

DRUGS (17)
  1. ERIVEDGE [Suspect]
     Active Substance: VISMODEGIB
     Indication: BASAL CELL CARCINOMA
     Dosage: RESTARTED ON AN UNSPECIFIED DATE?TAKE ONE CAPSULE BY MOUTH DAILY FOR 1 WEEK PER MONTH
     Route: 048
  2. CRESTOR [Concomitant]
     Active Substance: ROSUVASTATIN CALCIUM
  3. FAMOTIDINE. [Concomitant]
     Active Substance: FAMOTIDINE
  4. ONDANSETRON [Concomitant]
     Active Substance: ONDANSETRON
  5. ASPIRIN 81 [Concomitant]
     Active Substance: ASPIRIN
  6. SPIRONOLACTON [Concomitant]
     Active Substance: SPIRONOLACTONE
  7. BENZONATATE. [Concomitant]
     Active Substance: BENZONATATE
  8. FUROSEMIDE. [Concomitant]
     Active Substance: FUROSEMIDE
  9. HYDROCHLOROTHIAZID [Concomitant]
     Active Substance: HYDROCHLOROTHIAZIDE
  10. QUINAPRIL. [Concomitant]
     Active Substance: QUINAPRIL
  11. CEPHALEXIN. [Concomitant]
     Active Substance: CEPHALEXIN
  12. VERAPAMIL [Concomitant]
     Active Substance: VERAPAMIL HYDROCHLORIDE
  13. PLAVIX [Concomitant]
     Active Substance: CLOPIDOGREL BISULFATE
  14. MULTAQ [Concomitant]
     Active Substance: DRONEDARONE
  15. ACETAMINOPHEN. [Concomitant]
     Active Substance: ACETAMINOPHEN
  16. ACCUPRIL [Concomitant]
     Active Substance: QUINAPRIL HYDROCHLORIDE
  17. CARVEDILOL. [Concomitant]
     Active Substance: CARVEDILOL

REACTIONS (9)
  - Stomatitis [Recovered/Resolved]
  - Pain in extremity [Unknown]
  - Nausea [Unknown]
  - Paraesthesia oral [Recovering/Resolving]
  - Diarrhoea [Unknown]
  - Ageusia [Recovered/Resolved]
  - Muscle spasms [Unknown]
  - Constipation [Unknown]
  - Dyspnoea [Unknown]
